FAERS Safety Report 7223473-8 (Version None)
Quarter: 2011Q1

REPORT INFORMATION
  Report Type: 
  Country: None (occurrence: None)
  Receive Date: 20110112
  Receipt Date: 20100716
  Transmission Date: 20110831
  Serious: No
  Sender: FDA-Public Use
  Company Number: US-ALLERGAN-1009319US

PATIENT
  Age: 67 Year
  Sex: Female

DRUGS (1)
  1. RESTASIS [Suspect]
     Indication: DRY EYE
     Dosage: 1 UNK, UNK
     Route: 047
     Dates: start: 20090101

REACTIONS (6)
  - VISION BLURRED [None]
  - PHOTOPHOBIA [None]
  - EYE IRRITATION [None]
  - DIZZINESS [None]
  - NAUSEA [None]
  - HEADACHE [None]
